FAERS Safety Report 4488620-X (Version None)
Quarter: 2004Q4

REPORT INFORMATION
  Report Type: 
  Country: None (occurrence: None)
  Receive Date: 20041025
  Receipt Date: 20041012
  Transmission Date: 20050328
  Serious: Yes (Disabling)
  Sender: FDA-Public Use
  Company Number: 2004UW21562

PATIENT
  Age: 52 Year
  Sex: Female

DRUGS (2)
  1. ARIMIDEX [Suspect]
  2. ARIMIDEX [Suspect]

REACTIONS (7)
  - AMNESIA [None]
  - BONE PAIN [None]
  - CONFUSIONAL STATE [None]
  - DEPRESSION [None]
  - LIGAMENT DISORDER [None]
  - SOMNOLENCE [None]
  - TOOTH LOSS [None]
